FAERS Safety Report 14124602 (Version 1)
Quarter: 2017Q4

REPORT INFORMATION
  Report Type: Spontaneous
  Country: GB (occurrence: GB)
  Receive Date: 20171025
  Receipt Date: 20171025
  Transmission Date: 20180321
  Serious: Yes (Hospitalization)
  Sender: FDA-Public Use
  Company Number: GB-TEVA-816801ACC

PATIENT
  Age: 84 Year
  Sex: Female

DRUGS (7)
  1. LANSOPRAZOLE. [Suspect]
     Active Substance: LANSOPRAZOLE
     Route: 048
     Dates: end: 20170929
  2. ALENDRONIC ACID [Concomitant]
     Active Substance: ALENDRONIC ACID
  3. ASPIRIN. [Concomitant]
     Active Substance: ASPIRIN
  4. CALCICHEW D3 [Concomitant]
     Active Substance: CALCIUM\CHOLECALCIFEROL
  5. FERROUS FUMARATE [Concomitant]
     Active Substance: FERROUS FUMARATE
  6. LEVOTHYROXINE. [Concomitant]
     Active Substance: LEVOTHYROXINE
  7. CALCICHEW [Concomitant]
     Active Substance: CALCIUM CARBONATE

REACTIONS (1)
  - Hyponatraemia [Recovering/Resolving]
